FAERS Safety Report 7764391-6 (Version None)
Quarter: 2011Q3

REPORT INFORMATION
  Report Type: 
  Country: None (occurrence: None)
  Receive Date: 20110919
  Receipt Date: 20110905
  Transmission Date: 20111222
  Serious: Yes (Hospitalization, Other)
  Sender: FDA-Public Use
  Company Number: DSJ-2011-11669

PATIENT
  Age: 5 Decade
  Sex: Female

DRUGS (11)
  1. METFORMIN HCL [Concomitant]
  2. LEVOMEPROMAZINE (LEVOMEPROMAZINE) (LEVOMEPROMAZINE) [Concomitant]
  3. CLONAZEPAM [Concomitant]
  4. GLYCINE MAX (GLYCINE MAX) (GLYCINE MAX) [Concomitant]
  5. SERTRALINE HYDROCHLORIDE [Concomitant]
  6. EZETIMIBE/SAMVASTATIN [Suspect]
     Indication: HYPERCHOLESTEROLAEMIA
     Dosage: 10MG/20MG,PER ORAL
     Route: 048
     Dates: start: 20110601
  7. CARBAMAZEPINE [Concomitant]
  8. BENICAR [Suspect]
     Indication: HYPERTENSION
     Dosage: SEE IMAGE
     Route: 048
     Dates: start: 20101001, end: 20110301
  9. BENICAR [Suspect]
     Indication: HYPERTENSION
     Dosage: SEE IMAGE
     Route: 048
     Dates: start: 20110601
  10. BENICAR [Suspect]
     Indication: HYPERTENSION
     Dosage: SEE IMAGE
     Route: 048
     Dates: start: 20110301, end: 20110601
  11. DIAZEPAM [Concomitant]

REACTIONS (9)
  - DEPRESSION [None]
  - DRUG INEFFECTIVE [None]
  - HYPERAEMIA [None]
  - OEDEMA PERIPHERAL [None]
  - CONDITION AGGRAVATED [None]
  - COMA [None]
  - HYPERCHOLESTEROLAEMIA [None]
  - BLOOD PRESSURE INCREASED [None]
  - GINGIVAL DISORDER [None]
